FAERS Safety Report 18953108 (Version 2)
Quarter: 2021Q1

REPORT INFORMATION
  Report Type: Spontaneous
  Country: IT (occurrence: IT)
  Receive Date: 20210301
  Receipt Date: 20210319
  Transmission Date: 20210420
  Serious: Yes (Disabling)
  Sender: FDA-Public Use
  Company Number: IT-ORGANON-O2102ITA007664

PATIENT
  Age: 31 Year
  Sex: Male
  Weight: 58 kg

DRUGS (1)
  1. PROSTIDE (FINASTERIDE) [Suspect]
     Active Substance: FINASTERIDE
     Indication: PROSTATITIS
     Dosage: 5 MILLIGRAM, QD (DOSAGE FORM REPORTED AS LOZENGE)
     Route: 048

REACTIONS (7)
  - Depression [Not Recovered/Not Resolved]
  - Insomnia [Not Recovered/Not Resolved]
  - Erectile dysfunction [Not Recovered/Not Resolved]
  - Prostatic pain [Not Recovered/Not Resolved]
  - Loss of libido [Not Recovered/Not Resolved]
  - Suicidal ideation [Not Recovered/Not Resolved]
  - Off label use [Not Recovered/Not Resolved]

NARRATIVE: CASE EVENT DATE: 20200920
